FAERS Safety Report 11774879 (Version 1)
Quarter: 2015Q4

REPORT INFORMATION
  Report Type: Spontaneous
  Country: AT (occurrence: AT)
  Receive Date: 20151124
  Receipt Date: 20151124
  Transmission Date: 20160304
  Serious: Yes (Life-Threatening, Hospitalization, Other)
  Sender: FDA-Public Use
  Company Number: AT-PFIZER INC-2015397630

PATIENT
  Age: 60 Year
  Sex: Male

DRUGS (24)
  1. SORTIS [Concomitant]
     Active Substance: ATORVASTATIN
     Dosage: 40 MG, 1X/DAY
     Dates: start: 20141205
  2. EFECTIN ER [Suspect]
     Active Substance: VENLAFAXINE HYDROCHLORIDE
     Dosage: 150 MG, 1X/DAY
     Dates: start: 20150127
  3. ZYPREXA [Suspect]
     Active Substance: OLANZAPINE
     Indication: TENSION
     Dosage: 5 MG, 1X/DAY
     Dates: start: 20150403
  4. ZYPREXA [Suspect]
     Active Substance: OLANZAPINE
     Indication: RESTLESSNESS
  5. AMLODIPINE [Concomitant]
     Active Substance: AMLODIPINE BESYLATE
     Dosage: 5 MG, 1X/DAY
     Dates: start: 20141211
  6. THROMBO ASS [Concomitant]
     Active Substance: ASPIRIN
     Dosage: 100 MG, 1X/DAY
     Dates: start: 20140822
  7. NITROLINGUAL [Concomitant]
     Active Substance: NITROGLYCERIN
     Dosage: UNK
     Dates: start: 20141121
  8. TAMSULOSIN +PHARMA RET-KPS [Concomitant]
     Dosage: 0.4 MG, 1X/DAY
     Dates: start: 20150429
  9. SAROTEN [Suspect]
     Active Substance: AMITRIPTYLINE
     Dosage: 50 MG, 1X/DAY
     Dates: start: 20141204
  10. MOVICOL [Concomitant]
     Active Substance: POLYETHYLENE GLYCOL 3350\POTASSIUM CHLORIDE\SODIUM BICARBONATE\SODIUM CHLORIDE
     Dosage: 1 DF, 1X/DAY
     Dates: start: 20140822
  11. THERMORHEUMON [Concomitant]
     Dosage: 1 DF, 2X/DAY
     Dates: start: 20151022
  12. SEROQUEL [Suspect]
     Active Substance: QUETIAPINE FUMARATE
     Dosage: 200 MG, 1X/DAY
     Dates: start: 20141211
  13. SIRDALUD [Concomitant]
     Active Substance: TIZANIDINE
     Indication: SPINAL PAIN
     Dosage: 2 MG, 1X/DAY, AS NEEDED
     Dates: start: 20150403
  14. NOAX UNO RET [Concomitant]
     Dosage: 100 MG, 2X/DAY
     Dates: start: 20151029
  15. SPASMOLYT [Concomitant]
     Dosage: 30 MG, 2X/DAY
     Dates: start: 20151029
  16. PANTOPRAZOL GENERICON [Concomitant]
     Dosage: 20 MG, 1X/DAY
     Dates: start: 20141205
  17. NOVALGIN [Concomitant]
     Active Substance: METAMIZOLE SODIUM
     Indication: PAIN
     Dosage: 30 GTT, 3X/DAY, AS NEEDED
     Dates: start: 20141204
  18. MEXALEN [Concomitant]
     Active Substance: ACETAMINOPHEN
     Indication: BACK PAIN
     Dosage: UNK, AS NEEDED
  19. MIRTABENE [Suspect]
     Active Substance: MIRTAZAPINE
     Dosage: 30 MG, 1X/DAY
     Dates: start: 20150127
  20. RISPERDAL [Suspect]
     Active Substance: RISPERIDONE
     Dosage: 2 MG, 2X/DAY
     Dates: start: 20150127
  21. CANDIO HERMAL SOFT PASTE [Concomitant]
     Dosage: 2X/DAY, MOUTH CORNER
     Dates: start: 20141002
  22. LISINOPRIL AND HYDROCHLOROTHIAZIDE 20/25 [Concomitant]
     Dosage: 0.5 DF, 1X/DAY
     Dates: start: 20141205
  23. TEMESTA [Suspect]
     Active Substance: LORAZEPAM
     Dosage: 2 MG, 1X/DAY
     Dates: start: 20151010
  24. DAKTARIN 2% CREME [Concomitant]
     Dosage: 3X/DAY, ORAL CAVITY
     Dates: start: 20141002

REACTIONS (5)
  - Catatonia [Not Recovered/Not Resolved]
  - Hyponatraemia [Not Recovered/Not Resolved]
  - Epilepsy [Not Recovered/Not Resolved]
  - Cold sweat [Not Recovered/Not Resolved]
  - Aphasia [Not Recovered/Not Resolved]

NARRATIVE: CASE EVENT DATE: 20151029
